FAERS Safety Report 4284257-6 (Version None)
Quarter: 2004Q1

REPORT INFORMATION
  Report Type: 
  Country: None (occurrence: None)
  Receive Date: 20040203
  Receipt Date: 20040119
  Transmission Date: 20041129
  Serious: Yes (Hospitalization)
  Sender: FDA-Public Use
  Company Number: WAES 0401ISR00015B1

PATIENT
  Sex: Male
  Weight: 2 kg

DRUGS (2)
  1. ALDOMET [Suspect]
     Indication: HYPERTENSION
  2. ALDOMET [Suspect]

REACTIONS (14)
  - CAESAREAN SECTION [None]
  - COUGH [None]
  - DRUG EXPOSURE DURING PREGNANCY [None]
  - FACE OEDEMA [None]
  - FATIGUE [None]
  - HEADACHE [None]
  - HYPERCHOLESTEROLAEMIA [None]
  - HYPERTENSION [None]
  - HYPOALBUMINAEMIA [None]
  - PRE-ECLAMPSIA [None]
  - PREMATURE BABY [None]
  - PROTEINURIA [None]
  - TACHYPNOEA [None]
  - UTERINE SPASM [None]
